FAERS Safety Report 9257579 (Version 1)
Quarter: 2013Q2

REPORT INFORMATION
  Report Type: Spontaneous
  Country: US (occurrence: US)
  Receive Date: 20130426
  Receipt Date: 20130426
  Transmission Date: 20140414
  Serious: Yes (Other)
  Sender: FDA-Public Use
  Company Number: US-PFIZER INC-2013127789

PATIENT
  Age: 76 Year
  Sex: Female
  Weight: 59 kg

DRUGS (4)
  1. PREMARIN [Suspect]
     Indication: VAGINAL DISORDER
     Dosage: UNK
     Route: 067
     Dates: start: 201002
  2. PREDNISONE [Concomitant]
     Dosage: 1 MG, 1X/DAY
  3. ATENOLOL [Concomitant]
     Dosage: 25 MG, UNK
  4. NORVASC [Concomitant]
     Dosage: 10 MG, UNK

REACTIONS (2)
  - Rheumatoid arthritis [Unknown]
  - Bladder cyst [Unknown]
